FAERS Safety Report 8545697-X (Version None)
Quarter: 2012Q3

REPORT INFORMATION
  Report Type: 
  Country: None (occurrence: None)
  Receive Date: 20120727
  Receipt Date: 20120723
  Transmission Date: 20120928
  Serious: Yes (Other)
  Sender: FDA-Public Use
  Company Number: US-AMGEN-USASP2012037001

PATIENT
  Sex: Male

DRUGS (8)
  1. ATENOLOL [Concomitant]
     Dosage: UNK
  2. RENVELA [Concomitant]
     Dosage: UNK
  3. EPOGEN [Suspect]
     Indication: DIALYSIS
     Dosage: 11000 IU, 3 TIMES/WK
     Dates: start: 20110101
  4. SENSIPAR [Suspect]
     Indication: HYPERPARATHYROIDISM SECONDARY
     Dosage: 180 MG, QD
  5. HECTOROL [Concomitant]
     Dosage: UNK
  6. VENOFER [Concomitant]
     Dosage: UNK UNK, QWK
  7. EPOGEN [Suspect]
     Dosage: 23100 IU, 3 TIMES/WK
  8. SERTRALINE HYDROCHLORIDE [Concomitant]
     Dosage: UNK

REACTIONS (1)
  - THERAPEUTIC RESPONSE DECREASED [None]
